FAERS Safety Report 4287830-4 (Version None)
Quarter: 2004Q1

REPORT INFORMATION
  Report Type: 
  Country: None (occurrence: None)
  Receive Date: 20040205
  Receipt Date: 20031224
  Transmission Date: 20041129
  Serious: Yes (Hospitalization)
  Sender: FDA-Public Use
  Company Number: A01200306088

PATIENT
  Age: 38 Year
  Sex: Male

DRUGS (1)
  1. DANAZOL [Suspect]
     Indication: THROMBOCYTOPENIA
     Dosage: 300 MG TID; ORAL
     Route: 048

REACTIONS (13)
  - ANTIPHOSPHOLIPID SYNDROME [None]
  - CEREBRAL ISCHAEMIA [None]
  - CONDITION AGGRAVATED [None]
  - DYSARTHRIA [None]
  - HAEMODIALYSIS [None]
  - HEMIPARESIS [None]
  - LUNG INFILTRATION [None]
  - NERVOUS SYSTEM DISORDER [None]
  - PULMONARY EMBOLISM [None]
  - PYREXIA [None]
  - RASH [None]
  - RAYNAUD'S PHENOMENON [None]
  - RENAL FAILURE ACUTE [None]
